FAERS Safety Report 9640369 (Version 1)
Quarter: 2013Q4

REPORT INFORMATION
  Report Type: Spontaneous
  Country: US (occurrence: None)
  Receive Date: 20131022
  Receipt Date: 20131022
  Transmission Date: 20140711
  Serious: Yes (Life-Threatening, Hospitalization, Disabling)
  Sender: FDA-Public Use
  Company Number: None

PATIENT
  Age: 3 Year
  Sex: Male
  Weight: 16.33 kg

DRUGS (2)
  1. ATIVAN [Suspect]
     Indication: HYPERSENSITIVITY
     Dates: start: 20080115, end: 20080219
  2. VALIUM [Suspect]
     Indication: DRUG DEPENDENCE
     Dates: start: 20130228, end: 20130510

REACTIONS (4)
  - Hypersensitivity [None]
  - Muscle spasticity [None]
  - Joint hyperextension [None]
  - Similar reaction on previous exposure to drug [None]
